FAERS Safety Report 8781030 (Version 1)
Quarter: 2012Q4

REPORT INFORMATION
  Report Type: 
  Country: DE (occurrence: FR)
  Receive Date: 20120913
  Receipt Date: 20120913
  Transmission Date: 20130627
  Serious: Yes (Hospitalization)
  Sender: FDA-Public Use
  Company Number: FR-FRI-1000038443

PATIENT
  Age: 75 Year
  Sex: Female

DRUGS (14)
  1. MEMANTINE [Suspect]
     Dosage: 10 mg
     Route: 048
     Dates: start: 20120511, end: 20120704
  2. MIANSERINE [Suspect]
     Dosage: 2 DF
     Route: 048
     Dates: end: 20120704
  3. IMOVANE [Suspect]
     Dosage: 7.5 mg
     Route: 048
     Dates: start: 20110912, end: 20120704
  4. LOXAPINE [Suspect]
     Dosage: 50 mg
     Route: 048
     Dates: start: 20120120, end: 20120704
  5. RISPERDAL [Suspect]
     Dosage: 4 mg
     Route: 048
  6. RISPERDAL [Suspect]
     Dosage: Dose reduced (nos)
     Route: 048
  7. DAFALGAN [Concomitant]
  8. DEDROGYL [Concomitant]
  9. DUROGESIC [Concomitant]
  10. FLUDEX [Concomitant]
  11. KARDEGIC [Concomitant]
  12. LEVOTHYROX [Concomitant]
  13. TAHOR [Concomitant]
  14. TRANSIPEG [Concomitant]

REACTIONS (13)
  - Confusional state [Recovered/Resolved]
  - Sinus tachycardia [Recovered/Resolved]
  - General physical health deterioration [Recovered/Resolved]
  - Nausea [None]
  - Vomiting [None]
  - Bladder dilatation [None]
  - Faecaloma [None]
  - Renal impairment [None]
  - Hypernatraemia [None]
  - Hypokalaemia [None]
  - Hypercalcaemia [None]
  - Mitral valve stenosis [None]
  - Lung disorder [None]
